FAERS Safety Report 6323947-8 (Version None)
Quarter: 2009Q3

REPORT INFORMATION
  Report Type: 
  Country: None (occurrence: None)
  Receive Date: 20090824
  Receipt Date: 20090814
  Transmission Date: 20100115
  Serious: Yes (Hospitalization, Other)
  Sender: FDA-Public Use
  Company Number: A0802300A

PATIENT
  Sex: Female

DRUGS (4)
  1. BUPROPION HYDROCHLORIDE [Suspect]
     Indication: DEPRESSION
     Dosage: 150MG TWICE PER DAY
     Route: 048
     Dates: start: 20080422, end: 20081224
  2. TYLENOL (CAPLET) [Concomitant]
  3. VITAMIN TAB [Concomitant]
  4. AMBIEN [Concomitant]

REACTIONS (23)
  - ABDOMINAL DISCOMFORT [None]
  - ANAEMIA [None]
  - BACK PAIN [None]
  - CYSTITIS [None]
  - DRUG EXPOSURE DURING PREGNANCY [None]
  - FOETAL HYPOKINESIA [None]
  - HEADACHE [None]
  - MIGRAINE [None]
  - MUSCLE CONTRACTURE [None]
  - NAUSEA [None]
  - OEDEMA [None]
  - PAIN [None]
  - POLLAKIURIA [None]
  - PRE-ECLAMPSIA [None]
  - PREGNANCY INDUCED HYPERTENSION [None]
  - PREMATURE LABOUR [None]
  - PROTEIN URINE [None]
  - SMEAR CERVIX ABNORMAL [None]
  - UTERINE CONTRACTIONS ABNORMAL [None]
  - UTERINE DISORDER [None]
  - VAGINAL HAEMORRHAGE [None]
  - VOMITING [None]
  - WEIGHT INCREASED [None]
